FAERS Safety Report 10686955 (Version 3)
Quarter: 2015Q1

REPORT INFORMATION
  Report Type: Spontaneous
  Country: US (occurrence: US)
  Receive Date: 20150102
  Receipt Date: 20150310
  Transmission Date: 20150720
  Serious: Yes (Life-Threatening)
  Sender: FDA-Public Use
  Company Number: US-009507513-1412USA013164

PATIENT
  Age: 45 Year
  Sex: Female
  Weight: 70.75 kg

DRUGS (2)
  1. NASONEX [Suspect]
     Active Substance: MOMETASONE FUROATE
     Indication: RHINITIS ALLERGIC
     Dosage: 200 MICROGRAM, QD, 50 MICROGRAM / 2 SPRAYS EACH NOSTRIL ONCE DAILY
     Route: 045
     Dates: start: 20141223, end: 20141224
  2. CEFDINIR. [Concomitant]
     Active Substance: CEFDINIR
     Dosage: UNK

REACTIONS (9)
  - Throat tightness [Recovered/Resolved]
  - Lip swelling [Recovered/Resolved]
  - Pruritus generalised [Recovered/Resolved]
  - Chills [Recovered/Resolved]
  - Drug administration error [Unknown]
  - Nausea [Recovered/Resolved]
  - Dyspnoea [Recovered/Resolved]
  - Rash macular [Recovering/Resolving]
  - Urticaria [Recovered/Resolved]

NARRATIVE: CASE EVENT DATE: 20141223
